FAERS Safety Report 7545128-2 (Version None)
Quarter: 2011Q2

REPORT INFORMATION
  Report Type: 
  Country: None (occurrence: None)
  Receive Date: 20110610
  Receipt Date: 20110610
  Transmission Date: 20111010
  Serious: No
  Sender: FDA-Public Use
  Company Number: None

PATIENT
  Age: 78 Year
  Sex: Male
  Weight: 89.3586 kg

DRUGS (1)
  1. LUPRON [Suspect]
     Indication: PROSTATE CANCER
     Dosage: 4MO INJECTION
     Dates: start: 20080901, end: 20101101

REACTIONS (14)
  - PAIN [None]
  - PAIN IN EXTREMITY [None]
  - MUSCLE ATROPHY [None]
  - NEURALGIA [None]
  - OSTEOPOROSIS [None]
  - DEPRESSION [None]
  - ALOPECIA [None]
  - HOT FLUSH [None]
  - BREAST ENLARGEMENT [None]
  - RASH [None]
  - MEMORY IMPAIRMENT [None]
  - WEIGHT INCREASED [None]
  - CARDIAC MURMUR [None]
  - LOSS OF LIBIDO [None]
